FAERS Safety Report 6746215-9 (Version None)
Quarter: 2010Q2

REPORT INFORMATION
  Report Type: 
  Country: None (occurrence: None)
  Receive Date: 20100528
  Receipt Date: 20100202
  Transmission Date: 20101027
  Serious: No
  Sender: FDA-Public Use
  Company Number: US-ASTRAZENECA-2010SE04677

PATIENT
  Age: 85 Year
  Sex: Female
  Weight: 67.1 kg

DRUGS (4)
  1. OMEPRAZOLE [Suspect]
     Route: 048
  2. GAVISCON REGULAR [Concomitant]
     Indication: DYSPEPSIA
  3. GAVISCON REGULAR [Concomitant]
     Indication: GASTROOESOPHAGEAL REFLUX DISEASE
  4. PANTOPRAZOLE [Concomitant]

REACTIONS (2)
  - DRUG INEFFECTIVE [None]
  - DYSGEUSIA [None]
